FAERS Safety Report 10293264 (Version 1)
Quarter: 2014Q3

REPORT INFORMATION
  Report Type: Spontaneous
  Country: US (occurrence: US)
  Receive Date: 20140710
  Receipt Date: 20140710
  Transmission Date: 20150326
  Serious: Yes (Hospitalization)
  Sender: FDA-Public Use
  Company Number: US-TEVA-492588USA

PATIENT
  Age: 65 Year
  Sex: Female
  Weight: 113.5 kg

DRUGS (8)
  1. EFFEXOR XR [Concomitant]
     Active Substance: VENLAFAXINE HYDROCHLORIDE
     Indication: DEPRESSION
  2. METOPROLOL [Concomitant]
     Active Substance: METOPROLOL
     Indication: HYPERTENSION
     Dosage: 50 MILLIGRAM DAILY;
     Route: 048
  3. NEXIUM [Concomitant]
     Active Substance: ESOMEPRAZOLE MAGNESIUM
     Indication: GASTROOESOPHAGEAL REFLUX DISEASE
     Dosage: 80 MILLIGRAM DAILY;
     Route: 048
  4. ABILIFY [Concomitant]
     Active Substance: ARIPIPRAZOLE
     Indication: DEPRESSION
  5. NUVIGIL [Suspect]
     Active Substance: ARMODAFINIL
     Indication: SOMNOLENCE
  6. NUVIGIL [Suspect]
     Active Substance: ARMODAFINIL
     Indication: SLEEP APNOEA SYNDROME
     Dates: start: 2013, end: 20140513
  7. DYAZIDE [Concomitant]
     Active Substance: HYDROCHLOROTHIAZIDE\TRIAMTERENE
     Indication: HYPERTENSION
     Dosage: 37.5/25MG
     Route: 048
  8. NORCO [Concomitant]
     Active Substance: ACETAMINOPHEN\HYDROCODONE BITARTRATE
     Indication: PAIN
     Dosage: 20/650MG
     Route: 048

REACTIONS (3)
  - Mania [Recovered/Resolved]
  - Weight decreased [Unknown]
  - Insomnia [Recovered/Resolved]

NARRATIVE: CASE EVENT DATE: 20140513
